FAERS Safety Report 8956636 (Version 3)
Quarter: 2013Q1

REPORT INFORMATION
  Report Type: Spontaneous
  Country: JP (occurrence: JP)
  Receive Date: 20121210
  Receipt Date: 20130118
  Transmission Date: 20140127
  Serious: Yes (Other)
  Sender: FDA-Public Use
  Company Number: PHHY2012JP111278

PATIENT
  Age: 71 Year
  Sex: Male

DRUGS (8)
  1. DIOVAN [Suspect]
     Indication: HYPERTENSION
     Dosage: 80 MG, DAILY
     Route: 048
     Dates: end: 20121113
  2. CO-DIOVAN [Suspect]
     Indication: HYPERTENSION
     Dosage: 1 DF, DAILY
     Route: 048
     Dates: end: 20121113
  3. ITOROL [Concomitant]
     Dosage: 40 MG, UNK
     Route: 048
  4. GASTER [Concomitant]
     Dosage: 20 MG, UNK
     Route: 048
  5. BAYASPIRIN [Concomitant]
     Dosage: 100 MG, UNK
     Route: 048
  6. FLIVAS [Concomitant]
     Dosage: 75 MG, UNK
     Route: 048
  7. FLIVAS [Concomitant]
     Dosage: 75 MG, UNK
     Route: 048
  8. PROSTAL [Concomitant]
     Dosage: 50 MG, UNK
     Route: 048

REACTIONS (2)
  - Pneumonia aspiration [Recovered/Resolved]
  - Hyponatraemia [Recovered/Resolved]
